FAERS Safety Report 9265123 (Version 1)
Quarter: 2013Q2

REPORT INFORMATION
  Report Type: Spontaneous
  Country: GR (occurrence: None)
  Receive Date: 20130429
  Receipt Date: 20130429
  Transmission Date: 20140414
  Serious: Yes (Death, Hospitalization, Other)
  Sender: FDA-Public Use
  Company Number: 7207595

PATIENT
  Age: 17 Year
  Sex: Female

DRUGS (4)
  1. LEVOTHYROXINE [Suspect]
     Indication: HYPOTHYROIDISM
  2. CISPLATIN [Concomitant]
  3. ETOPOSIDE (ETOPOSIDE)(ETOPOSIDE) [Concomitant]
  4. BLEOMYCIN (BLEOMYCIN)(BLEOMYCIN) [Concomitant]

REACTIONS (6)
  - Acute respiratory distress syndrome [None]
  - Thrombocytopenia [None]
  - Growth retardation [None]
  - Psychomotor retardation [None]
  - Communication disorder [None]
  - Haematotoxicity [None]
